FAERS Safety Report 19480476 (Version 2)
Quarter: 2021Q4

REPORT INFORMATION
  Report Type: Spontaneous
  Country: BR (occurrence: BR)
  Receive Date: 20210701
  Receipt Date: 20211007
  Transmission Date: 20220304
  Serious: No
  Sender: FDA-Public Use
  Company Number: BR-TOLMAR, INC.-21BR027355

PATIENT
  Sex: Male
  Weight: 99 kg

DRUGS (7)
  1. ELIGARD [Suspect]
     Active Substance: LEUPROLIDE ACETATE
     Indication: Product used for unknown indication
     Dosage: 45 MG
     Route: 058
     Dates: start: 20210218, end: 20210218
  2. LOSARTAN [Concomitant]
     Active Substance: LOSARTAN
     Indication: Hypertension
     Dosage: 50 MG, QD
  3. ROSUVASTATIN [Concomitant]
     Active Substance: ROSUVASTATIN
     Indication: Dyslipidaemia
     Dosage: 10 MG, QD
  4. POLYVITAMIN DROPS [Concomitant]
     Indication: Supplementation therapy
     Dosage: 1 DOSAGE FORM, QD
  5. CHOLECALCIFEROL [Concomitant]
     Active Substance: CHOLECALCIFEROL
     Indication: Supplementation therapy
     Dosage: 7000 INTERNATIONAL UNIT, 1/WEEK
  6. SILDENAFIL [Concomitant]
     Active Substance: SILDENAFIL
     Indication: Erectile dysfunction
     Dosage: UNK
  7. RADIATION THERAPY [Concomitant]
     Active Substance: RADIATION THERAPY
     Indication: Product used for unknown indication

REACTIONS (1)
  - Drug ineffective [Not Recovered/Not Resolved]
